FAERS Safety Report 4983773-9 (Version None)
Quarter: 2006Q1

REPORT INFORMATION
  Report Type: 
  Country: None (occurrence: None)
  Receive Date: 20060301
  Receipt Date: 20051227
  Transmission Date: 20060701
  Serious: No
  Sender: FDA-Public Use
  Company Number: S05-USA-05365-01

PATIENT
  Age: 81 Year
  Sex: Male

DRUGS (9)
  1. NAMENDA [Suspect]
     Indication: DEMENTIA ALZHEIMER'S TYPE
     Dosage: 5 MG QD PO
     Route: 048
     Dates: start: 20051205, end: 20051211
  2. NAMENDA [Suspect]
     Indication: DEMENTIA ALZHEIMER'S TYPE
     Dosage: 5 MG BID PO
     Route: 048
     Dates: start: 20051212, end: 20051218
  3. NAMENDA [Suspect]
     Indication: DEMENTIA ALZHEIMER'S TYPE
     Dosage: 15 MG QD PO
     Route: 048
     Dates: start: 20051219, end: 20051225
  4. NAMENDA [Suspect]
     Indication: DEMENTIA ALZHEIMER'S TYPE
     Dosage: 10 MG BID PO
     Route: 048
     Dates: start: 20051226
  5. EXELON [Concomitant]
  6. VASOTEC [Concomitant]
  7. LIPITOR [Concomitant]
  8. ARTHRITIS MEDICATION (NOS) [Concomitant]
  9. VITAMINS NOS [Concomitant]

REACTIONS (2)
  - DYSPEPSIA [None]
  - OESOPHAGEAL PAIN [None]
